FAERS Safety Report 22279208 (Version 5)
Quarter: 2023Q2

REPORT INFORMATION
  Report Type: Spontaneous
  Country: US (occurrence: US)
  Receive Date: 20230503
  Receipt Date: 20230626
  Transmission Date: 20230721
  Serious: Yes (Life-Threatening, Hospitalization)
  Sender: FDA-Public Use
  Company Number: US-BAYER-2023A060246

PATIENT
  Age: 45 Year
  Sex: Female

DRUGS (5)
  1. ASTEPRO [Suspect]
     Active Substance: AZELASTINE HYDROCHLORIDE
     Indication: Paranasal sinus hypersecretion
     Dosage: UNK
     Dates: start: 20230420
  2. ASTEPRO [Suspect]
     Active Substance: AZELASTINE HYDROCHLORIDE
     Indication: Paranasal sinus hypersecretion
     Dosage: UNK
     Dates: start: 20230425
  3. AMOXICILIN RNP [Concomitant]
  4. METHYLPREDNISOLONE [Concomitant]
     Active Substance: METHYLPREDNISOLONE
  5. CLARITIN [Concomitant]
     Active Substance: LORATADINE

REACTIONS (10)
  - Swelling face [Unknown]
  - Drug hypersensitivity [Unknown]
  - Urticaria [Unknown]
  - Peripheral swelling [Unknown]
  - Vocal cord disorder [Unknown]
  - Nasal discomfort [Unknown]
  - Sneezing [None]
  - Dysphonia [None]
  - Pruritus [None]
  - Adverse event [None]

NARRATIVE: CASE EVENT DATE: 20230420
